FAERS Safety Report 6057681-9 (Version None)
Quarter: 2009Q1

REPORT INFORMATION
  Report Type: 
  Country: None (occurrence: None)
  Receive Date: 20090129
  Receipt Date: 20090121
  Transmission Date: 20090719
  Serious: Yes (Life-Threatening, Hospitalization)
  Sender: FDA-Public Use
  Company Number: US-KINGPHARMUSA00001-K200900057

PATIENT
  Age: 18 Year
  Sex: Female
  Weight: 60 kg

DRUGS (6)
  1. THROMBIN NOS [Suspect]
     Indication: OPERATIVE HAEMORRHAGE
     Dosage: 10000 IU, UNK
     Route: 061
  2. ABSORBABLE GELATIN SPONGE [Suspect]
     Indication: OPERATIVE HAEMORRHAGE
     Dosage: 2 G, UNK
     Route: 061
  3. FENTANYL [Concomitant]
     Indication: ANAESTHESIA
     Route: 042
  4. KETAMINE HCL [Concomitant]
     Indication: ANAESTHESIA
     Route: 042
  5. PROPOFOL [Concomitant]
     Indication: ANAESTHESIA
     Route: 042
  6. DESFLURANE [Concomitant]
     Indication: ANAESTHESIA
     Route: 042

REACTIONS (5)
  - CARDIAC ARREST [None]
  - DISSEMINATED INTRAVASCULAR COAGULATION [None]
  - DRUG ADMINISTRATION ERROR [None]
  - EMBOLISM [None]
  - RIGHT VENTRICULAR FAILURE [None]
